APPROVED DRUG PRODUCT: COLCHICINE
Active Ingredient: COLCHICINE
Strength: 0.6MG
Dosage Form/Route: TABLET;ORAL
Application: A215444 | Product #001 | TE Code: AB
Applicant: AUROBINDO PHARMA LTD
Approved: Jan 6, 2022 | RLD: No | RS: No | Type: RX